FAERS Safety Report 17602089 (Version 1)
Quarter: 2020Q1

REPORT INFORMATION
  Report Type: Spontaneous
  Country: DE (occurrence: DE)
  Receive Date: 20200330
  Receipt Date: 20200330
  Transmission Date: 20200409
  Serious: Yes (Other)
  Sender: FDA-Public Use
  Company Number: DE-BAUSCH-BL-2020-008489

PATIENT
  Age: 81 Year
  Sex: Male

DRUGS (16)
  1. PREDNISOLONE. [Suspect]
     Active Substance: PREDNISOLONE
     Dosage: 4 COURSES OF MODIFIED R-CHOP IN 75 PERCENT DOSE REDUCTION
     Route: 065
  2. LIPOSOMAL DOXORUBICIN [Suspect]
     Active Substance: DOXORUBICIN HYDROCHLORIDE
     Indication: DIFFUSE LARGE B-CELL LYMPHOMA
     Dosage: MODIFIED R-CHOP IN MONTHLY INTERVALS
     Route: 065
  3. PREDNISOLONE. [Suspect]
     Active Substance: PREDNISOLONE
     Indication: DIFFUSE LARGE B-CELL LYMPHOMA
     Dosage: MODIFIED R-CHOP IN MONTHLY INTERVALS
     Route: 065
  4. RITUXIMAB. [Concomitant]
     Active Substance: RITUXIMAB
     Indication: DIFFUSE LARGE B-CELL LYMPHOMA
     Dosage: 1 CYCLE OF A MAINTENANCE MONOTHERAPY
     Route: 065
  5. PREDNISOLONE. [Suspect]
     Active Substance: PREDNISOLONE
     Dosage: ANOTHER COURSE OF MODIFIED R-CHOP IN 100 PERCENT DOSING
     Route: 065
  6. RITUXIMAB. [Suspect]
     Active Substance: RITUXIMAB
     Indication: DIFFUSE LARGE B-CELL LYMPHOMA
     Dosage: MODIFIED R-CHOP IN MONTHLY INTERVALS
     Route: 065
  7. CYCLOPHOSPHAMIDE. [Suspect]
     Active Substance: CYCLOPHOSPHAMIDE
     Indication: DIFFUSE LARGE B-CELL LYMPHOMA
     Dosage: MODIFIED R-CHOP IN MONTHLY INTERVALS
     Route: 065
  8. CYCLOPHOSPHAMIDE. [Suspect]
     Active Substance: CYCLOPHOSPHAMIDE
     Dosage: 4 COURSES OF MODIFIED R-CHOP IN 75 PERCENT DOSE REDUCTION
     Route: 065
  9. CYCLOPHOSPHAMIDE. [Suspect]
     Active Substance: CYCLOPHOSPHAMIDE
     Dosage: ANOTHER COURSE OF MODIFIED R-CHOP IN 100 PERCENT  DOSING
     Route: 065
  10. LIPOSOMAL DOXORUBICIN [Suspect]
     Active Substance: DOXORUBICIN HYDROCHLORIDE
     Dosage: 4 COURSES OF MODIFIED R-CHOP IN 75 PERCENT DOSE REDUCTION
     Route: 065
  11. LIPOSOMAL DOXORUBICIN [Suspect]
     Active Substance: DOXORUBICIN HYDROCHLORIDE
     Dosage: ANOTHER COURSE OF MODIFIED R-CHOP IN 100 PERCENT DOSING
     Route: 065
  12. RITUXIMAB. [Suspect]
     Active Substance: RITUXIMAB
     Dosage: ANOTHER COURSE OF MODIFIED R-CHOP IN 100 PERCENT DOSING
     Route: 065
  13. VINCRISTINE [Suspect]
     Active Substance: VINCRISTINE
     Dosage: ANOTHER COURSE OF MODIFIED R-CHOP IN 100 PERCENT DOSING
     Route: 065
  14. RITUXIMAB. [Suspect]
     Active Substance: RITUXIMAB
     Dosage: 4 COURSES OF MODIFIED R-CHOP IN 75 PERCENT DOSE REDUCTION
     Route: 065
  15. VINCRISTINE [Suspect]
     Active Substance: VINCRISTINE
     Indication: DIFFUSE LARGE B-CELL LYMPHOMA
     Dosage: MODIFIED R-CHOP IN MONTHLY INTERVALS
     Route: 065
  16. VINCRISTINE [Suspect]
     Active Substance: VINCRISTINE
     Dosage: 4 COURSES OF MODIFIED R-CHOP IN 75 PERCENT DOSE REDUCTION
     Route: 065

REACTIONS (6)
  - Dizziness [Unknown]
  - Thrombosis [Unknown]
  - Headache [Unknown]
  - Extravasation [Unknown]
  - Agitation [Unknown]
  - Leukopenia [Unknown]
